FAERS Safety Report 8173978-0 (Version None)
Quarter: 2012Q1

REPORT INFORMATION
  Report Type: 
  Country: None (occurrence: None)
  Receive Date: 20120229
  Receipt Date: 20120224
  Transmission Date: 20120608
  Serious: Yes (Hospitalization, Other)
  Sender: FDA-Public Use
  Company Number: GB-ROCHE-1039236

PATIENT
  Sex: Female
  Weight: 90.7 kg

DRUGS (2)
  1. MABTHERA [Suspect]
     Indication: CHRONIC LYMPHOCYTIC LEUKAEMIA
     Dosage: DATE OF LAST DOSE PRIOR TO EVENT: 16/JAN/2012
     Route: 042
     Dates: start: 20111121
  2. CHLORAMBUCIL [Suspect]
     Indication: CHRONIC LYMPHOCYTIC LEUKAEMIA
     Dosage: 20MG/DAY FOR 7 DAYS EACH CYCLE, DATE OF LAST DOSE PRIOR TO EVENT: 22/JAN/2012
     Route: 048
     Dates: start: 20111121

REACTIONS (3)
  - RENAL IMPAIRMENT [None]
  - DEHYDRATION [None]
  - RENAL FAILURE ACUTE [None]
